FAERS Safety Report 9103398 (Version 4)
Quarter: 2013Q3

REPORT INFORMATION
  Report Type: Other
  Country: NO (occurrence: NO)
  Receive Date: 20130219
  Receipt Date: 20130829
  Transmission Date: 20140515
  Serious: Yes (Other)
  Sender: FDA-Public Use
  Company Number: NO-BRISTOL-MYERS SQUIBB COMPANY-17387291

PATIENT
  Age: 63 Year
  Sex: Male

DRUGS (5)
  1. ERBITUX SOLN FOR INF [Suspect]
     Indication: NEURALGIA
     Route: 042
  2. ERBITUX SOLN FOR INF [Suspect]
     Indication: NEURALGIA
     Route: 042
  3. PANITUMUMAB [Suspect]
     Indication: NEURALGIA
     Route: 042
  4. PANITUMUMAB [Suspect]
     Indication: NEURALGIA
     Route: 042
  5. PREGABALIN [Concomitant]
     Indication: NEURALGIA

REACTIONS (5)
  - Iridocyclitis [Recovered/Resolved]
  - Uveitis [Recovering/Resolving]
  - Dermatitis acneiform [Recovering/Resolving]
  - Dry skin [Unknown]
  - Off label use [Unknown]
